FAERS Safety Report 9262998 (Version 2)
Quarter: 2014Q2

REPORT INFORMATION
  Report Type: Report from Study
  Country: DE (occurrence: DE)
  Receive Date: 20130430
  Receipt Date: 20140609
  Transmission Date: 20141212
  Serious: Yes (Death)
  Sender: FDA-Public Use
  Company Number: DE-ROCHE-1219648

PATIENT
  Age: 63 Year
  Sex: Male
  Weight: 70 kg

DRUGS (4)
  1. BEVACIZUMAB [Suspect]
     Indication: COLON CANCER
     Route: 042
     Dates: start: 20130225, end: 20130225
  2. CALCIUM FOLINATE [Concomitant]
     Indication: COLON CANCER
     Route: 042
     Dates: start: 20130225, end: 20130306
  3. 5-FU [Concomitant]
     Indication: COLON CANCER
     Route: 042
     Dates: start: 20130225, end: 20130306
  4. IRINOTECAN [Concomitant]
     Indication: COLON CANCER
     Route: 042
     Dates: start: 20130225, end: 20130306

REACTIONS (2)
  - Pyrexia [Fatal]
  - Sepsis [Fatal]
